FAERS Safety Report 10029855 (Version 1)
Quarter: 2014Q1

REPORT INFORMATION
  Report Type: Spontaneous
  Country: US (occurrence: None)
  Receive Date: 20140320
  Receipt Date: 20140320
  Transmission Date: 20141002
  Serious: Yes (Hospitalization, Other)
  Sender: FDA-Public Use
  Company Number: 001686212A

PATIENT
  Sex: Female

DRUGS (4)
  1. PROACTIV + SKIN SMOOTHING EXFOLIATOR [Suspect]
     Indication: ACNE
     Route: 061
     Dates: start: 20140209, end: 20140211
  2. PROACTIV + PORE TARGETING TREATMENT [Suspect]
     Indication: ACNE
     Route: 061
     Dates: start: 20140209, end: 20140211
  3. PROACTIV + COMPLEXION PERFECTING HYDRATOR [Suspect]
     Indication: ACNE
     Route: 061
     Dates: start: 20140209, end: 20140211
  4. PROACTIV + SKIN PURIFYING MASK [Suspect]
     Indication: ACNE
     Route: 061
     Dates: start: 20140209, end: 20140211

REACTIONS (2)
  - Local swelling [None]
  - Swelling face [None]
